FAERS Safety Report 4900640-7 (Version None)
Quarter: 2006Q1

REPORT INFORMATION
  Report Type: 
  Country: None (occurrence: None)
  Receive Date: 20060201
  Receipt Date: 20060113
  Transmission Date: 20060701
  Serious: Yes (Hospitalization)
  Sender: FDA-Public Use
  Company Number: US200601002371

PATIENT
  Age: 54 Year
  Sex: Female

DRUGS (1)
  1. FORTEO [Suspect]
     Indication: OSTEOPOROSIS
     Dates: start: 20041101

REACTIONS (3)
  - HIP SURGERY [None]
  - INJECTION SITE BRUISING [None]
  - SURGERY [None]
